FAERS Safety Report 5316475-X (Version None)
Quarter: 2007Q2

REPORT INFORMATION
  Report Type: 
  Country: None (occurrence: None)
  Receive Date: 20070430
  Receipt Date: 20070418
  Transmission Date: 20071010
  Serious: Yes (Other)
  Sender: FDA-Public Use
  Company Number: 16180

PATIENT
  Age: 49 Year

DRUGS (6)
  1. DOXORUBICIN HCL [Suspect]
     Indication: NON-HODGKIN'S LYMPHOMA
     Dosage: 50 MG/M2 PER_CYCLE IV
     Route: 042
  2. ETOPOSIDE [Suspect]
     Indication: NON-HODGKIN'S LYMPHOMA
     Dosage: 100 MG/M2 PER_CYCLE IV
     Route: 042
  3. VINCRISTINE [Suspect]
     Indication: NON-HODGKIN'S LYMPHOMA
     Dosage: 1.4 MG/M2 PER_CYCLE IV
     Route: 042
  4. RITUXIMAB [Suspect]
     Indication: NON-HODGKIN'S LYMPHOMA
  5. PREDNISOLONE [Suspect]
     Indication: NON-HODGKIN'S LYMPHOMA
     Dosage: 100 MG PER_CYCLE PO
     Route: 048
  6. CYCLOPHOSPHAMIDE [Suspect]
     Indication: NON-HODGKIN'S LYMPHOMA
     Dosage: 750 MG/M2 PER_CYCLE IV
     Route: 042

REACTIONS (3)
  - IMMUNODEFICIENCY [None]
  - INFECTION IN AN IMMUNOCOMPROMISED HOST [None]
  - PNEUMOCYSTIS JIROVECI PNEUMONIA [None]
